FAERS Safety Report 6895697-0 (Version None)
Quarter: 2010Q3

REPORT INFORMATION
  Report Type: 
  Country: None (occurrence: None)
  Receive Date: 20100730
  Receipt Date: 20100730
  Transmission Date: 20110219
  Serious: Yes (Hospitalization, Other)
  Sender: FDA-Public Use
  Company Number: None

PATIENT
  Age: 48 Year
  Sex: Male
  Weight: 77.1115 kg

DRUGS (1)
  1. ANDROGEL [Suspect]
     Indication: BLOOD TESTOSTERONE DECREASED
     Dosage: 1 PACKET -5 G- 1X DAY TRANSDERMAL
     Route: 062
     Dates: start: 20090401, end: 20100728

REACTIONS (2)
  - BLOOD URINE PRESENT [None]
  - PROSTATOMEGALY [None]
